FAERS Safety Report 8620852-9 (Version None)
Quarter: 2012Q3

REPORT INFORMATION
  Report Type: 
  Country: None (occurrence: None)
  Receive Date: 20120824
  Receipt Date: 20120802
  Transmission Date: 20120928
  Serious: Yes (Other)
  Sender: FDA-Public Use
  Company Number: GB-BAUSCH-BL-2012-000566

PATIENT
  Sex: Female

DRUGS (4)
  1. LOTEMAX [Suspect]
     Indication: FUNGAL INFECTION
     Dosage: ONE DROP INTO BOTH EYES DAILY
     Route: 047
     Dates: start: 20100601
  2. PREDNISOLONE [Suspect]
  3. DEXAMETHASONE [Suspect]
  4. TIMOLOL MALEATE [Suspect]

REACTIONS (2)
  - DIABETES MELLITUS [None]
  - OFF LABEL USE [None]
